FAERS Safety Report 4661252-6 (Version None)
Quarter: 2005Q2

REPORT INFORMATION
  Report Type: 
  Country: None (occurrence: None)
  Receive Date: 20050429
  Receipt Date: 20040917
  Transmission Date: 20051028
  Serious: Yes (Hospitalization)
  Sender: FDA-Public Use
  Company Number: HQWYE123820SEP04

PATIENT

DRUGS (1)
  1. PROTONIX [Suspect]
     Dosage: INTRAVENOUS
     Route: 042
     Dates: start: 20040101

REACTIONS (1)
  - THROMBOCYTOPENIA [None]
